FAERS Safety Report 4453083-7 (Version None)
Quarter: 2004Q3

REPORT INFORMATION
  Report Type: 
  Country: None (occurrence: None)
  Receive Date: 20040813
  Receipt Date: 20040517
  Transmission Date: 20050211
  Serious: No
  Sender: FDA-Public Use
  Company Number: S04-USA-03299-01

PATIENT
  Age: 86 Year
  Sex: Male
  Weight: 66.6788 kg

DRUGS (6)
  1. NAMENDA [Suspect]
     Indication: DEMENTIA ALZHEIMER'S TYPE
     Dosage: 200 MG ONCE PO
     Route: 048
     Dates: start: 20040516, end: 20040516
  2. NAMENDA [Suspect]
     Indication: DEMENTIA ALZHEIMER'S TYPE
     Dosage: 10 MG BID PO
     Route: 048
     Dates: start: 20040523
  3. NAMENDA [Suspect]
     Indication: DEMENTIA ALZHEIMER'S TYPE
     Dosage: 5 MG QD PO
     Route: 048
     Dates: start: 20040504, end: 20040510
  4. NAMENDA [Suspect]
     Indication: DEMENTIA ALZHEIMER'S TYPE
     Dosage: 10 MG QD PO
     Route: 048
     Dates: start: 20040511, end: 20040515
  5. LOTREL [Concomitant]
  6. TYLENOL [Concomitant]

REACTIONS (3)
  - ACCIDENTAL OVERDOSE [None]
  - ASTHENIA [None]
  - FATIGUE [None]
